FAERS Safety Report 22528239 (Version 1)
Quarter: 2023Q2

REPORT INFORMATION
  Report Type: Other
  Country: TW (occurrence: None)
  Receive Date: 20230607
  Receipt Date: 20230607
  Transmission Date: 20230721
  Serious: Yes (Other)
  Sender: FDA-Public Use
  Company Number: TW-ROCHE-3359535

PATIENT
  Age: 80 Year
  Sex: Male

DRUGS (1)
  1. TECENTRIQ [Suspect]
     Active Substance: ATEZOLIZUMAB
     Indication: Small cell lung cancer extensive stage
     Dosage: TECENTRIQ_LC/UC (2+1) X 6 THEN FREE 18 CYCLES
     Route: 065

REACTIONS (1)
  - Metastatic neoplasm [Unknown]
